FAERS Safety Report 9302330 (Version 2)
Quarter: 2013Q3

REPORT INFORMATION
  Report Type: Spontaneous
  Country: JP (occurrence: JP)
  Receive Date: 20130522
  Receipt Date: 20130805
  Transmission Date: 20140515
  Serious: Yes (Death, Life-Threatening)
  Sender: FDA-Public Use
  Company Number: JP-ROCHE-1227093

PATIENT
  Age: 63 Year
  Sex: Male
  Weight: 57 kg

DRUGS (9)
  1. AVASTIN [Suspect]
     Indication: LUNG ADENOCARCINOMA METASTATIC
     Route: 041
     Dates: start: 20130117, end: 20130408
  2. CARBOPLATIN [Suspect]
     Indication: LUNG ADENOCARCINOMA METASTATIC
     Route: 042
     Dates: start: 20130117, end: 20130408
  3. PEMETREXED [Suspect]
     Indication: LUNG ADENOCARCINOMA METASTATIC
     Route: 042
     Dates: start: 20130117, end: 20130408
  4. FOLIAMIN [Concomitant]
     Indication: PROPHYLAXIS
     Route: 048
     Dates: start: 20121226
  5. LOXOPROFEN SODIUM [Concomitant]
     Indication: CANCER PAIN
     Route: 048
     Dates: start: 20121226, end: 20130623
  6. OXYCONTIN [Concomitant]
     Indication: CANCER PAIN
     Route: 048
     Dates: start: 20130110, end: 20130607
  7. GRANISETRON [Concomitant]
     Indication: PROPHYLAXIS OF NAUSEA AND VOMITING
     Route: 041
     Dates: start: 20130117, end: 20130408
  8. DEXART [Concomitant]
     Indication: PROPHYLAXIS OF NAUSEA AND VOMITING
     Route: 041
     Dates: start: 20130117, end: 20130408
  9. RABEPRAZOLE SODIUM [Concomitant]
     Indication: GASTRITIS PROPHYLAXIS
     Route: 048
     Dates: start: 20130514, end: 20130623

REACTIONS (4)
  - Disseminated intravascular coagulation [Unknown]
  - Hypertension [Recovering/Resolving]
  - Constipation [Unknown]
  - Lung adenocarcinoma [Fatal]
